FAERS Safety Report 22380899 (Version 2)
Quarter: 2023Q2

REPORT INFORMATION
  Report Type: Spontaneous
  Country: US (occurrence: US)
  Receive Date: 20230530
  Receipt Date: 20230622
  Transmission Date: 20230721
  Serious: Yes (Other)
  Sender: FDA-Public Use
  Company Number: US-AMGEN-USASP2023088668

PATIENT
  Age: 65 Year
  Sex: Female

DRUGS (1)
  1. AIMOVIG [Suspect]
     Active Substance: ERENUMAB-AOOE
     Indication: Migraine
     Dosage: 70 MILLIGRAM
     Route: 065
     Dates: start: 201902

REACTIONS (7)
  - Cataract [Unknown]
  - Cataract operation [Unknown]
  - Wrong technique in device usage process [Unknown]
  - Drug ineffective [Unknown]
  - Injection site swelling [Recovering/Resolving]
  - Injection site pain [Unknown]
  - Needle issue [Unknown]

NARRATIVE: CASE EVENT DATE: 20190201
